FAERS Safety Report 7767300 (Version 7)
Quarter: 2013Q3

REPORT INFORMATION
  Report Type: Report from Study
  Country: US (occurrence: US)
  Receive Date: 20110120
  Receipt Date: 20130912
  Transmission Date: 20140515
  Serious: Yes (Hospitalization, Other)
  Sender: FDA-Public Use
  Company Number: US-ASTRAZENECA-2011SE01960

PATIENT
  Age: 52 Year
  Sex: Female
  Weight: 83.9 kg

DRUGS (5)
  1. NEXIUM [Suspect]
     Indication: GASTROOESOPHAGEAL REFLUX DISEASE
     Route: 048
  2. NEXIUM [Suspect]
     Indication: GASTROOESOPHAGEAL REFLUX DISEASE
     Dosage: THREE OR FOUR A DAY
     Route: 048
  3. NEXIUM [Suspect]
     Indication: GASTROOESOPHAGEAL REFLUX DISEASE
     Route: 048
     Dates: start: 2008, end: 20130731
  4. METOPROLOL [Suspect]
     Indication: HYPERTENSION
     Route: 048
     Dates: start: 2009
  5. PAIN MEDICATION [Suspect]
     Route: 065

REACTIONS (23)
  - Osteomyelitis [Not Recovered/Not Resolved]
  - Arthritis bacterial [Not Recovered/Not Resolved]
  - Gait disturbance [Not Recovered/Not Resolved]
  - Arthropathy [Unknown]
  - Liver disorder [Not Recovered/Not Resolved]
  - Meniscus injury [Unknown]
  - Throat irritation [Unknown]
  - Weight increased [Unknown]
  - Dyspepsia [Unknown]
  - Cartilage injury [Unknown]
  - Gastric disorder [Unknown]
  - Gastrooesophageal reflux disease [Not Recovered/Not Resolved]
  - Pain [Unknown]
  - Choking sensation [Not Recovered/Not Resolved]
  - Ammonia increased [Not Recovered/Not Resolved]
  - Fatigue [Not Recovered/Not Resolved]
  - Hypertension [Not Recovered/Not Resolved]
  - Activities of daily living impaired [Not Recovered/Not Resolved]
  - Arthralgia [Not Recovered/Not Resolved]
  - Insomnia [Not Recovered/Not Resolved]
  - Drug dose omission [Unknown]
  - Intentional drug misuse [Unknown]
  - Drug ineffective [Unknown]
